FAERS Safety Report 18850462 (Version 1)
Quarter: 2021Q1

REPORT INFORMATION
  Report Type: Spontaneous
  Country: FR (occurrence: FR)
  Receive Date: 20210205
  Receipt Date: 20210205
  Transmission Date: 20210420
  Serious: Yes (Hospitalization)
  Sender: FDA-Public Use
  Company Number: FR-TEVA-2021-FR-1875819

PATIENT
  Sex: Male
  Weight: 72 kg

DRUGS (6)
  1. CIPROFLOXACINE [Suspect]
     Active Substance: CIPROFLOXACIN
     Indication: PROSTATITIS
     Dosage: 1000MG
     Route: 048
     Dates: start: 20201204, end: 20201213
  2. CIPROFLOXACINE [Suspect]
     Active Substance: CIPROFLOXACIN
     Dosage: 1000MG
     Route: 048
     Dates: start: 20170804, end: 20170825
  3. CIPROFLOXACINE [Suspect]
     Active Substance: CIPROFLOXACIN
     Dosage: 1000MG
     Route: 048
     Dates: start: 20181206, end: 20181216
  4. CIPROFLOXACINE [Suspect]
     Active Substance: CIPROFLOXACIN
     Indication: URINARY TRACT INFECTION
     Dosage: 1000MG
     Route: 048
     Dates: start: 20180614, end: 20180705
  5. MONOFLOCET 200 MG, COMPRIME PELLICULE [Suspect]
     Active Substance: OFLOXACIN
     Indication: BIOPSY PROSTATE
     Dosage: 1 DOSAGE FORMS
     Route: 048
     Dates: start: 20180125, end: 20190805
  6. CIPROFLOXACINE [Suspect]
     Active Substance: CIPROFLOXACIN
     Dosage: 1000MG
     Route: 048
     Dates: start: 20201114, end: 20201129

REACTIONS (4)
  - Myalgia [Not Recovered/Not Resolved]
  - Burning sensation [Not Recovered/Not Resolved]
  - Muscle spasms [Not Recovered/Not Resolved]
  - Tendonitis [Recovered/Resolved]

NARRATIVE: CASE EVENT DATE: 201708
